FAERS Safety Report 4393640-X (Version None)
Quarter: 2004Q2

REPORT INFORMATION
  Report Type: 
  Country: None (occurrence: None)
  Receive Date: 20040621
  Receipt Date: 20011126
  Transmission Date: 20050107
  Serious: Yes (Hospitalization)
  Sender: FDA-Public Use
  Company Number: KII-2001-0007510

PATIENT
  Sex: Female

DRUGS (2)
  1. OXYCONTIN [Suspect]
     Indication: PAIN
  2. NUBAIN [Suspect]
     Indication: PAIN

REACTIONS (2)
  - DRUG WITHDRAWAL SYNDROME [None]
  - MEDICATION ERROR [None]
